FAERS Safety Report 8065532-6 (Version None)
Quarter: 2012Q1

REPORT INFORMATION
  Report Type: 
  Country: None (occurrence: None)
  Receive Date: 20120124
  Receipt Date: 20120117
  Transmission Date: 20120608
  Serious: Yes (Hospitalization)
  Sender: FDA-Public Use
  Company Number: DE-JNJFOC-20120106435

PATIENT
  Sex: Male

DRUGS (3)
  1. SEROQUEL XR [Interacting]
     Indication: PRODUCT USED FOR UNKNOWN INDICATION
     Route: 030
  2. PHENOBARBITAL TAB [Interacting]
     Indication: PRODUCT USED FOR UNKNOWN INDICATION
     Route: 030
  3. XEPLION [Suspect]
     Indication: PRODUCT USED FOR UNKNOWN INDICATION
     Route: 030

REACTIONS (2)
  - EXTRAPYRAMIDAL DISORDER [None]
  - DRUG INTERACTION [None]
